FAERS Safety Report 4379149-8 (Version None)
Quarter: 2004Q2

REPORT INFORMATION
  Report Type: 
  Country: None (occurrence: None)
  Receive Date: 20040614
  Receipt Date: 20040602
  Transmission Date: 20050107
  Serious: Yes (Other)
  Sender: FDA-Public Use
  Company Number: US-JNJFOC-20040404258

PATIENT
  Age: 41 Year
  Sex: Female

DRUGS (1)
  1. REMICADE [Suspect]
     Indication: CROHN'S DISEASE
     Dosage: 700 MG INTRAVENOUS
     Route: 042
     Dates: start: 20040301

REACTIONS (3)
  - ANAEMIA [None]
  - OVARIAN CANCER [None]
  - POST PROCEDURAL COMPLICATION [None]
